FAERS Safety Report 8229380-6 (Version None)
Quarter: 2012Q1

REPORT INFORMATION
  Report Type: 
  Country: None (occurrence: None)
  Receive Date: 20120322
  Receipt Date: 20120313
  Transmission Date: 20120608
  Serious: No
  Sender: FDA-Public Use
  Company Number: US-B.I. PHARMACEUTICALS,INC./RIDGEFIELD-2012-BP-04779BP

PATIENT
  Age: 78 Year
  Sex: Male

DRUGS (11)
  1. PRILOSEC [Concomitant]
     Indication: DYSPEPSIA
     Dosage: 20 MG
     Route: 048
  2. ASPIRIN [Concomitant]
     Indication: ROUTINE HEALTH MAINTENANCE
     Dosage: 162.5 MG
     Route: 048
  3. LISINOPRIL [Concomitant]
     Indication: HYPERTENSION
     Dosage: 5 MG
     Route: 048
  4. ISOSORBIDE MONONITRATE [Concomitant]
     Indication: HYPERTENSION
     Dosage: 30 MG
     Route: 048
  5. PLAVIX [Concomitant]
     Route: 048
  6. LOVAZA [Concomitant]
     Indication: ROUTINE HEALTH MAINTENANCE
     Route: 048
  7. CALCIUM CARBONATE [Concomitant]
     Indication: ROUTINE HEALTH MAINTENANCE
     Route: 048
  8. VERAPAMIL [Concomitant]
     Indication: BLOOD CHOLESTEROL INCREASED
     Route: 048
  9. SPIRIVA [Suspect]
     Indication: CHRONIC OBSTRUCTIVE PULMONARY DISEASE
     Dosage: 18 MCG
     Route: 055
     Dates: start: 20120201
  10. TERAZOSIN HCL [Concomitant]
     Indication: DYSPEPSIA
     Route: 048
  11. CRESTOR [Concomitant]
     Indication: BENIGN PROSTATIC HYPERPLASIA
     Dosage: 20 MG
     Route: 048

REACTIONS (2)
  - THROMBOSIS [None]
  - EPISTAXIS [None]
